FAERS Safety Report 7208750-9 (Version None)
Quarter: 2011Q1

REPORT INFORMATION
  Report Type: 
  Country: None (occurrence: None)
  Receive Date: 20110104
  Receipt Date: 20101231
  Transmission Date: 20110831
  Serious: Yes (Hospitalization, Other)
  Sender: FDA-Public Use
  Company Number: US-PFIZER INC-2011000011

PATIENT
  Sex: Male
  Weight: 79.365 kg

DRUGS (7)
  1. PREDNISONE [Concomitant]
     Indication: HEART TRANSPLANT
     Dosage: 5 MG, 1X/DAY
  2. ATENOLOL [Concomitant]
     Indication: HYPERTENSION
     Dosage: 100 MG, 1X/DAY
  3. LASIX [Concomitant]
     Indication: HYPERTENSION
     Dosage: 20 MG, 1X/DAY
  4. POTASSIUM [Concomitant]
     Indication: HYPOKALAEMIA
     Dosage: 20 MEQ, ALTERNATE DAY
  5. RAPAMUNE [Suspect]
     Indication: HEART TRANSPLANT
     Dosage: 2 MG, 1X/DAY
     Dates: start: 20090916, end: 20100212
  6. LISINOPRIL [Concomitant]
     Indication: HYPERTENSION
     Dosage: 20 MG, 1X/DAY
  7. ACETYLSALICYLIC ACID [Concomitant]
     Indication: CARDIAC DISORDER
     Dosage: 81 MG, 1X/DAY

REACTIONS (5)
  - DYSPNOEA [None]
  - RED BLOOD CELL SEDIMENTATION RATE INCREASED [None]
  - BRAIN NATRIURETIC PEPTIDE INCREASED [None]
  - ANAEMIA [None]
  - ASTHENIA [None]
